FAERS Safety Report 4929000-X (Version None)
Quarter: 2006Q1

REPORT INFORMATION
  Report Type: 
  Country: None (occurrence: None)
  Receive Date: 20060301
  Receipt Date: 20060221
  Transmission Date: 20060701
  Serious: Yes (Other)
  Sender: FDA-Public Use
  Company Number: 2006CG00367

PATIENT
  Age: 45 Year
  Sex: Male

DRUGS (7)
  1. OMEPRAZOLE [Suspect]
     Indication: GASTRIC ULCER
     Route: 048
     Dates: start: 20011001, end: 20010101
  2. OMEPRAZOLE [Suspect]
     Indication: HELICOBACTER INFECTION
     Route: 048
     Dates: start: 20011001, end: 20010101
  3. OMEPRAZOLE [Suspect]
     Route: 048
     Dates: start: 20010101, end: 20010101
  4. OMEPRAZOLE [Suspect]
     Route: 048
     Dates: start: 20010101, end: 20010101
  5. TRADITIONAL HERBAL MEDICINE [Suspect]
     Dates: start: 20011001
  6. AMOXICILLIN [Concomitant]
     Indication: HELICOBACTER INFECTION
     Dates: start: 20011001, end: 20010101
  7. METRONIDAZOLE [Concomitant]
     Indication: HELICOBACTER INFECTION
     Dates: start: 20011001, end: 20010101

REACTIONS (9)
  - AMNESIA [None]
  - BEZOAR [None]
  - HAEMATEMESIS [None]
  - IMPAIRED GASTRIC EMPTYING [None]
  - MALNUTRITION [None]
  - METASTASES TO LIVER [None]
  - METASTASES TO PERITONEUM [None]
  - REFUSAL OF TREATMENT BY PATIENT [None]
  - TUMOUR HAEMORRHAGE [None]
